FAERS Safety Report 12880776 (Version 1)
Quarter: 2016Q4

REPORT INFORMATION
  Report Type: Spontaneous
  Country: US (occurrence: US)
  Receive Date: 20161025
  Receipt Date: 20161025
  Transmission Date: 20170207
  Serious: No
  Sender: FDA-Public Use
  Company Number: US-GLAXOSMITHKLINE-US2016155843

PATIENT
  Sex: Female

DRUGS (7)
  1. FLOVENT [Suspect]
     Active Substance: FLUTICASONE PROPIONATE
     Indication: DYSPNOEA
     Dosage: UNK
  2. FLOVENT [Suspect]
     Active Substance: FLUTICASONE PROPIONATE
     Indication: DYSPNOEA
  3. PROAIR INHALER [Concomitant]
  4. FLOVENT [Suspect]
     Active Substance: FLUTICASONE PROPIONATE
     Indication: ASTHMA
     Dosage: 2 PUFF(S), VA
     Route: 055
  5. FLOVENT [Suspect]
     Active Substance: FLUTICASONE PROPIONATE
     Indication: DYSPNOEA
  6. FLUTICASONE PROPIONATE NASAL SPRAY [Suspect]
     Active Substance: FLUTICASONE PROPIONATE
     Dosage: 4 DF, QD
     Route: 045
  7. FLOVENT [Suspect]
     Active Substance: FLUTICASONE PROPIONATE
     Indication: DYSPNOEA

REACTIONS (7)
  - Cataract [Not Recovered/Not Resolved]
  - Visual impairment [Not Recovered/Not Resolved]
  - Dysphonia [Not Recovered/Not Resolved]
  - Skin tightness [Not Recovered/Not Resolved]
  - Wrong technique in product usage process [Unknown]
  - Expired product administered [Unknown]
  - Drug dose omission [Unknown]

NARRATIVE: CASE EVENT DATE: 2016
